FAERS Safety Report 23525275 (Version 2)
Quarter: 2024Q2

REPORT INFORMATION
  Report Type: Report from Study
  Country: US (occurrence: US)
  Receive Date: 20240215
  Receipt Date: 20240429
  Transmission Date: 20240715
  Serious: Yes (Death, Hospitalization)
  Sender: FDA-Public Use
  Company Number: US-TAIHOP-2024-001301

PATIENT
  Age: 61 Year
  Sex: Female
  Weight: 80.74 kg

DRUGS (1)
  1. LONSURF [Suspect]
     Active Substance: TIPIRACIL HYDROCHLORIDE\TRIFLURIDINE
     Indication: Colon cancer
     Dosage: CYCLE AND FORM STRENGTH UNKNOWN
     Route: 048
     Dates: start: 20240105

REACTIONS (8)
  - Death [Fatal]
  - Disease progression [Unknown]
  - Spinal fracture [Unknown]
  - Blood sodium decreased [Unknown]
  - Blood pressure decreased [Unknown]
  - Anaemia [Unknown]
  - Heart rate increased [Unknown]
  - Sedation [Unknown]

NARRATIVE: CASE EVENT DATE: 20240419
